FAERS Safety Report 4525039-7 (Version None)
Quarter: 2004Q4

REPORT INFORMATION
  Report Type: 
  Country: None (occurrence: None)
  Receive Date: 20041213
  Receipt Date: 20041206
  Transmission Date: 20050328
  Serious: Yes (Death, Life-Threatening, Hospitalization)
  Sender: FDA-Public Use
  Company Number: BR-BOEHRINGER INGELHEIM PHARMMACEUTICALS, INC.-2004-BP-13193BR

PATIENT
  Age: 79 Year
  Sex: Male
  Weight: 70 kg

DRUGS (4)
  1. SPIRIVA [Suspect]
     Route: 055
  2. SERETIDE [Concomitant]
  3. ALDACTONE [Concomitant]
  4. OXIGENOTERAPIA [Concomitant]

REACTIONS (4)
  - ACUTE RESPIRATORY FAILURE [None]
  - MULTI-ORGAN FAILURE [None]
  - PNEUMONIA [None]
  - RENAL FAILURE ACUTE [None]
